FAERS Safety Report 8367354-5 (Version None)
Quarter: 2012Q2

REPORT INFORMATION
  Report Type: 
  Country: None (occurrence: None)
  Receive Date: 20120517
  Receipt Date: 20120509
  Transmission Date: 20120825
  Serious: Yes (Life-Threatening, Hospitalization, Other)
  Sender: FDA-Public Use
  Company Number: US-BAYER-2011-081856

PATIENT
  Age: 25 Year
  Sex: Female
  Weight: 72.562 kg

DRUGS (17)
  1. LEVAQUIN [Concomitant]
  2. PROBIOTICS [Concomitant]
  3. IVANZ [Concomitant]
  4. IBUPROFEN [Concomitant]
  5. VICODIN [Concomitant]
  6. PROTONIX [Concomitant]
     Dosage: UNK
     Dates: end: 20100319
  7. HYOSCYAMINE SULFATE [Concomitant]
     Dosage: UNK
     Dates: end: 20100319
  8. PEPCID [Concomitant]
     Dosage: UNK
     Dates: end: 20100514
  9. POTASSIUM CHLORIDE [Concomitant]
     Indication: HYPOKALAEMIA
  10. AUGMENTIN [Concomitant]
  11. ACETAMINOPHEN [Concomitant]
     Dosage: UNK
     Dates: end: 20100314
  12. HYOMAX [Concomitant]
  13. ZOFRAN [Concomitant]
  14. ERTAPENEM [Concomitant]
  15. YAZ [Suspect]
     Indication: CONTRACEPTION
     Dosage: UNK
     Dates: start: 20061026, end: 20100301
  16. IBUPROFEN (ADVIL) [Concomitant]
     Dosage: UNK UNK, PRN
  17. SUBLIMAZE PRESERVATIVE FREE [Concomitant]
     Dosage: UNK
     Dates: end: 20100319

REACTIONS (42)
  - MESENTERIC VEIN THROMBOSIS [None]
  - THROMBOSIS IN DEVICE [None]
  - JUGULAR VEIN THROMBOSIS [None]
  - CHOLECYSTECTOMY [None]
  - PANCREATITIS CHRONIC [None]
  - MALNUTRITION [None]
  - ANXIETY [None]
  - PAIN [None]
  - SMALL INTESTINAL OBSTRUCTION [None]
  - HYPOTENSION [None]
  - PULMONARY EMBOLISM [None]
  - PORTAL VEIN THROMBOSIS [None]
  - SPLENIC VEIN THROMBOSIS [None]
  - ATRIAL SEPTAL DEFECT [None]
  - PNEUMONIA [None]
  - DEEP VEIN THROMBOSIS [None]
  - SKIN STRIAE [None]
  - EMOTIONAL DISTRESS [None]
  - HYPERGLYCAEMIA [None]
  - PORTAL HYPERTENSION [None]
  - CLOSTRIDIUM DIFFICILE COLITIS [None]
  - FLUID RETENTION [None]
  - MUSCLE ATROPHY [None]
  - ALOPECIA [None]
  - POST-TRAUMATIC STRESS DISORDER [None]
  - PANIC ATTACK [None]
  - GENERAL PHYSICAL HEALTH DETERIORATION [None]
  - JAUNDICE [None]
  - RENAL FAILURE ACUTE [None]
  - SCAR [None]
  - FEAR [None]
  - HYPERCOAGULATION [None]
  - COAGULOPATHY [None]
  - GASTRIC DISORDER [None]
  - SINUS TACHYCARDIA [None]
  - ACUTE HEPATIC FAILURE [None]
  - HEPATOCELLULAR INJURY [None]
  - THROMBOCYTOPENIA [None]
  - VARICES OESOPHAGEAL [None]
  - GASTROINTESTINAL HAEMORRHAGE [None]
  - HEPATOMEGALY [None]
  - CHOLECYSTITIS [None]
